FAERS Safety Report 6737649-7 (Version None)
Quarter: 2010Q2

REPORT INFORMATION
  Report Type: 
  Country: None (occurrence: None)
  Receive Date: 20100521
  Receipt Date: 20100521
  Transmission Date: 20101027
  Serious: Yes (Hospitalization)
  Sender: FDA-Public Use
  Company Number: None

PATIENT
  Age: 85 Year
  Sex: Female
  Weight: 63 kg

DRUGS (11)
  1. PHENYTOIN [Suspect]
     Indication: CONVULSION
     Dosage: 200 MG BID PO
     Route: 048
  2. ASPIRIN [Concomitant]
  3. ATENOLOL [Concomitant]
  4. CLOPIDOGREL [Concomitant]
  5. AMLODIPINE [Concomitant]
  6. CALCITRIOL [Concomitant]
  7. LEVOTHYROXINE SODIUM [Concomitant]
  8. OMEPRAZOLE [Concomitant]
  9. PHENYTOIN [Concomitant]
  10. CALCIUM + VITAMIN D [Concomitant]
  11. FERROUS SULFATE TAB [Concomitant]

REACTIONS (3)
  - DIZZINESS [None]
  - FALL [None]
  - HYPONATRAEMIA [None]
